FAERS Safety Report 5558519-6 (Version None)
Quarter: 2007Q4

REPORT INFORMATION
  Report Type: 
  Country: None (occurrence: None)
  Receive Date: 20071214
  Receipt Date: 20071204
  Transmission Date: 20080405
  Serious: Yes (Disabling, Other)
  Sender: FDA-Public Use
  Company Number: GB-PFIZER INC-2007102407

PATIENT
  Age: 80 Year
  Sex: Female
  Weight: 55 kg

DRUGS (19)
  1. LYRICA [Suspect]
     Indication: NEURALGIA
     Route: 048
     Dates: start: 20070920, end: 20070930
  2. LYRICA [Suspect]
     Route: 048
  3. BUPRENORPHINE HCL [Concomitant]
     Route: 061
  4. CEPHRADINE [Concomitant]
     Route: 048
     Dates: start: 20070829, end: 20070909
  5. CO-CODAMOL [Concomitant]
     Route: 048
     Dates: start: 20070829, end: 20070918
  6. DICLOFENAC SODIUM [Concomitant]
     Route: 048
  7. DOMPERIDONE [Concomitant]
     Route: 048
  8. DOXYCYCLINE [Concomitant]
     Route: 048
  9. FLUOROURACIL [Concomitant]
     Route: 061
  10. INADINE [Concomitant]
     Route: 061
  11. MORPHINE SULFATE [Concomitant]
     Route: 048
     Dates: start: 20070918, end: 20071003
  12. NASONEX [Concomitant]
     Route: 045
  13. OMEPRAZOLE [Concomitant]
     Route: 048
  14. ACETAMINOPHEN [Concomitant]
     Route: 048
  15. PREDNISOLONE [Concomitant]
     Route: 048
  16. SYNALAR [Concomitant]
     Route: 061
  17. TEMAZEPAM [Concomitant]
     Route: 048
  18. TRAMADOL HCL [Concomitant]
     Route: 048
     Dates: start: 20070914, end: 20070918
  19. TRAXAM [Concomitant]
     Route: 061

REACTIONS (13)
  - ANOREXIA [None]
  - ASTHENIA [None]
  - CONSTIPATION [None]
  - DRY MOUTH [None]
  - FLATULENCE [None]
  - HEADACHE [None]
  - NAUSEA [None]
  - OEDEMA [None]
  - PERIPHERAL COLDNESS [None]
  - THIRST [None]
  - URINE OUTPUT DECREASED [None]
  - VOMITING [None]
  - WEIGHT DECREASED [None]
